FAERS Safety Report 7789131-6 (Version None)
Quarter: 2011Q3

REPORT INFORMATION
  Report Type: 
  Country: None (occurrence: None)
  Receive Date: 20110930
  Receipt Date: 20110922
  Transmission Date: 20111222
  Serious: Yes (Hospitalization)
  Sender: FDA-Public Use
  Company Number: US-JNJFOC-20110910637

PATIENT
  Sex: Female

DRUGS (4)
  1. INVEGA [Suspect]
     Indication: SCHIZOPHRENIA, PARANOID TYPE
     Route: 048
  2. INVEGA [Suspect]
     Indication: PARANOIA
     Route: 048
  3. HALDOL [Suspect]
     Indication: PARANOIA
     Route: 065
  4. HALDOL [Suspect]
     Indication: SCHIZOPHRENIA, PARANOID TYPE
     Route: 065

REACTIONS (2)
  - HALLUCINATION, AUDITORY [None]
  - DELUSION [None]
